FAERS Safety Report 6047000-6 (Version None)
Quarter: 2009Q1

REPORT INFORMATION
  Report Type: 
  Country: None (occurrence: None)
  Receive Date: 20090122
  Receipt Date: 20090120
  Transmission Date: 20090719
  Serious: Yes (Life-Threatening)
  Sender: FDA-Public Use
  Company Number: CA-MERCK-0810CAN00134

PATIENT
  Sex: Male

DRUGS (3)
  1. ZETIA [Suspect]
     Indication: BLOOD CHOLESTEROL INCREASED
     Route: 048
     Dates: start: 20060101
  2. ROSUVASTATIN CALCIUM [Concomitant]
     Route: 048
     Dates: start: 20040101
  3. CLOPIDOGREL BISULFATE [Concomitant]
     Route: 065

REACTIONS (5)
  - DYSPNOEA [None]
  - FATIGUE [None]
  - MUSCULOSKELETAL STIFFNESS [None]
  - MYALGIA [None]
  - TRANSIENT ISCHAEMIC ATTACK [None]
